FAERS Safety Report 13499668 (Version 1)
Quarter: 2017Q2

REPORT INFORMATION
  Report Type: Spontaneous
  Country: US (occurrence: US)
  Receive Date: 20170430
  Receipt Date: 20170430
  Transmission Date: 20170830
  Serious: Yes (Hospitalization)
  Sender: FDA-Public Use
  Company Number: None

PATIENT
  Age: 70 Year
  Sex: Male
  Weight: 215 kg

DRUGS (1)
  1. AMIODARONE [Suspect]
     Active Substance: AMIODARONE
     Indication: ATRIAL FIBRILLATION
     Route: 042
     Dates: start: 20170320, end: 20170321

REACTIONS (8)
  - Hyperkalaemia [None]
  - Blood creatinine increased [None]
  - Toxicity to various agents [None]
  - Myoclonus [None]
  - Electrocardiogram QRS complex prolonged [None]
  - Liver function test increased [None]
  - Acute kidney injury [None]
  - Dizziness [None]

NARRATIVE: CASE EVENT DATE: 20170322
